FAERS Safety Report 9764210 (Version 5)
Quarter: 2014Q3

REPORT INFORMATION
  Report Type: Spontaneous
  Country: US (occurrence: US)
  Receive Date: 20131216
  Receipt Date: 20140722
  Transmission Date: 20150326
  Serious: Yes (Disabling)
  Sender: FDA-Public Use
  Company Number: US-009507513-1312USA004596

PATIENT
  Sex: Male
  Weight: 115.37 kg

DRUGS (2)
  1. AMBIEN [Concomitant]
     Active Substance: ZOLPIDEM TARTRATE
     Dosage: UNK
     Dates: start: 2008
  2. PROPECIA [Suspect]
     Active Substance: FINASTERIDE
     Indication: ALOPECIA
     Dosage: 1 MG, UNK
     Route: 048
     Dates: start: 20101021, end: 20110131

REACTIONS (14)
  - Libido decreased [Recovering/Resolving]
  - Sexual dysfunction [Unknown]
  - Anxiety [Not Recovered/Not Resolved]
  - Insomnia [Unknown]
  - Vision blurred [Unknown]
  - Erectile dysfunction [Not Recovered/Not Resolved]
  - Genital atrophy [Unknown]
  - Weight increased [Unknown]
  - Fatigue [Recovering/Resolving]
  - Sleep apnoea syndrome [Unknown]
  - Depressive symptom [Not Recovered/Not Resolved]
  - Hypogonadism [Unknown]
  - Endocrine disorder [Unknown]
  - Labile hypertension [Unknown]

NARRATIVE: CASE EVENT DATE: 2010
